FAERS Safety Report 9772931 (Version 2)
Quarter: 2014Q1

REPORT INFORMATION
  Report Type: Spontaneous
  Country: SK (occurrence: SK)
  Receive Date: 20131219
  Receipt Date: 20140321
  Transmission Date: 20141002
  Serious: Yes (Life-Threatening, Hospitalization)
  Sender: FDA-Public Use
  Company Number: SK-B.I. PHARMACEUTICALS,INC./RIDGEFIELD-2013-BI-42668SK

PATIENT
  Sex: Male

DRUGS (7)
  1. PRADAXA [Suspect]
     Indication: ATRIAL FIBRILLATION
     Dosage: 220 MG
     Route: 048
  2. EBRANTIL R/URAPIDIL [Concomitant]
     Dosage: 120 MG
     Route: 048
  3. AGEN/AMLODIPINE [Concomitant]
     Dosage: 5 MG
     Route: 048
  4. TRITACE/RAMIPRIL [Concomitant]
     Route: 048
  5. DETRALEX/DIOSMIN+HESPERIDIN [Concomitant]
     Dosage: 2000 MG
     Route: 048
  6. VEROSPIRONE/SPIRONOLACTONE [Concomitant]
     Dosage: 25 MG
     Route: 048
  7. FURON/FUROSEMID [Concomitant]
     Dosage: 40 MG
     Route: 048

REACTIONS (1)
  - Haematemesis [Recovered/Resolved]
